FAERS Safety Report 7603264-6 (Version None)
Quarter: 2011Q3

REPORT INFORMATION
  Report Type: 
  Country: None (occurrence: None)
  Receive Date: 20110712
  Receipt Date: 20110629
  Transmission Date: 20111222
  Serious: Yes (Other)
  Sender: FDA-Public Use
  Company Number: US-JNJFOC-20110701003

PATIENT
  Sex: Female

DRUGS (2)
  1. REMICADE [Suspect]
     Indication: CROHN'S DISEASE
     Route: 042
     Dates: end: 20110101
  2. REMICADE [Suspect]
     Route: 042

REACTIONS (4)
  - URINARY TRACT INFECTION [None]
  - POST PROCEDURAL COMPLICATION [None]
  - DRUG INEFFECTIVE [None]
  - KIDNEY INFECTION [None]
